FAERS Safety Report 23977315 (Version 1)
Quarter: 2024Q2

REPORT INFORMATION
  Report Type: Spontaneous
  Country: US (occurrence: None)
  Receive Date: 20240614
  Receipt Date: 20240614
  Transmission Date: 20240716
  Serious: Yes (Other)
  Sender: FDA-Public Use
  Company Number: None

PATIENT
  Age: 42 Year
  Sex: Female
  Weight: 60.75 kg

DRUGS (4)
  1. MONISTAT 7 [Suspect]
     Active Substance: MICONAZOLE NITRATE
     Dosage: OTHER QUANTITY : 1 SUPPOSITORY(IES)?FREQUENCY : AT BEDTIME?
     Route: 067
     Dates: start: 20240613, end: 20240614
  2. METRONIDAZOLE [Concomitant]
     Active Substance: METRONIDAZOLE
  3. ASPIRIN [Concomitant]
     Active Substance: ASPIRIN
  4. VITAMINS [Concomitant]
     Active Substance: VITAMINS

REACTIONS (2)
  - Vulvovaginal pain [None]
  - Vulvovaginal pruritus [None]

NARRATIVE: CASE EVENT DATE: 20240613
